FAERS Safety Report 21231550 (Version 2)
Quarter: 2022Q3

REPORT INFORMATION
  Report Type: Report from Study
  Country: CA (occurrence: CA)
  Receive Date: 20220819
  Receipt Date: 20220830
  Transmission Date: 20221027
  Serious: Yes (Other)
  Sender: FDA-Public Use
  Company Number: CA-JNJFOC-20220825573

PATIENT
  Age: 45 Year
  Sex: Female

DRUGS (1)
  1. REMICADE [Suspect]
     Active Substance: INFLIXIMAB
     Indication: Cogan^s syndrome
     Route: 041
     Dates: start: 20160225

REACTIONS (5)
  - Rheumatoid arthritis [Unknown]
  - Deafness unilateral [Unknown]
  - SARS-CoV-2 test positive [Recovering/Resolving]
  - COVID-19 [Unknown]
  - Off label use [Unknown]

NARRATIVE: CASE EVENT DATE: 20160225
